FAERS Safety Report 25947322 (Version 2)
Quarter: 2025Q4

REPORT INFORMATION
  Report Type: Spontaneous
  Country: JP (occurrence: JP)
  Receive Date: 20251022
  Receipt Date: 20251109
  Transmission Date: 20260118
  Serious: Yes (Hospitalization, Other)
  Sender: SANOFI AVENTIS
  Company Number: JP-DialogSolutions-SAAVPROD-PI832165-C1

PATIENT
  Age: 54 Year
  Sex: Female
  Weight: 54.4 kg

DRUGS (3)
  1. DUPILUMAB [Suspect]
     Active Substance: DUPILUMAB
     Indication: Sinusitis
     Dosage: UNK
     Route: 065
  2. DUPILUMAB [Suspect]
     Active Substance: DUPILUMAB
     Indication: Eosinophilia
  3. DUPILUMAB [Suspect]
     Active Substance: DUPILUMAB
     Indication: Asthma

REACTIONS (9)
  - Anti-glomerular basement membrane disease [Recovering/Resolving]
  - Glomerulonephritis [Recovering/Resolving]
  - Pyrexia [Recovering/Resolving]
  - Oedema peripheral [Recovering/Resolving]
  - Renal impairment [Recovering/Resolving]
  - Glomerulosclerosis [Recovering/Resolving]
  - Lymphocytic infiltration [Recovering/Resolving]
  - Acute kidney injury [Recovering/Resolving]
  - Off label use [Recovering/Resolving]
